FAERS Safety Report 5048949-3 (Version None)
Quarter: 2006Q3

REPORT INFORMATION
  Report Type: 
  Country: None (occurrence: None)
  Receive Date: 20060712
  Receipt Date: 20050921
  Transmission Date: 20061208
  Serious: No
  Sender: FDA-Public Use
  Company Number: US-GLAXOSMITHKLINE-A0575213A

PATIENT
  Age: 48 Year
  Sex: Female

DRUGS (5)
  1. IMITREX [Suspect]
     Indication: MIGRAINE
     Dosage: 100MG THREE TIMES PER WEEK
     Route: 048
  2. NASONEX [Concomitant]
  3. XANAX [Concomitant]
  4. ZYRTEC [Concomitant]
  5. RELPAX [Concomitant]

REACTIONS (3)
  - ANXIETY [None]
  - DEPRESSION [None]
  - FLATULENCE [None]
